FAERS Safety Report 9208988 (Version 1)
Quarter: 2013Q2

REPORT INFORMATION
  Report Type: Spontaneous
  Country: KR (occurrence: KR)
  Receive Date: 20130404
  Receipt Date: 20130404
  Transmission Date: 20140414
  Serious: Yes (Hospitalization, Other)
  Sender: FDA-Public Use
  Company Number: KR-ROXANE LABORATORIES, INC.-2013-RO-00430RO

PATIENT
  Age: 59 Year
  Sex: Male

DRUGS (3)
  1. METHOTREXATE [Suspect]
     Indication: BEHCET^S SYNDROME
  2. CLARITHROMYCIN [Suspect]
     Indication: SINUSITIS
     Dosage: 1000 MG
  3. COLCHICINE [Suspect]
     Indication: BEHCET^S SYNDROME

REACTIONS (2)
  - Rhabdomyolysis [Recovered/Resolved]
  - Hepatic enzyme increased [Recovered/Resolved]
